FAERS Safety Report 16904688 (Version 1)
Quarter: 2019Q4

REPORT INFORMATION
  Report Type: Spontaneous
  Country: US (occurrence: US)
  Receive Date: 20191010
  Receipt Date: 20191010
  Transmission Date: 20200122
  Serious: Yes (Disabling)
  Sender: FDA-Public Use
  Company Number: None

PATIENT
  Age: 64 Year
  Sex: Female
  Weight: 69.3 kg

DRUGS (1)
  1. OXYCODONE-ACETAMINOPHEN 10-325 [Suspect]
     Active Substance: ACETAMINOPHEN\OXYCODONE HYDROCHLORIDE
     Indication: SCIATICA
     Dosage: ?          QUANTITY:1 TABLET(S);?
     Route: 048
     Dates: start: 20190916, end: 20190930

REACTIONS (2)
  - Therapeutic product effect incomplete [None]
  - Product substitution issue [None]

NARRATIVE: CASE EVENT DATE: 20190916
